FAERS Safety Report 8490440-6 (Version None)
Quarter: 2012Q3

REPORT INFORMATION
  Report Type: 
  Country: None (occurrence: None)
  Receive Date: 20120705
  Receipt Date: 20120622
  Transmission Date: 20120928
  Serious: No
  Sender: FDA-Public Use
  Company Number: US-ASTRAZENECA-2012SE36710

PATIENT
  Age: 82 Year
  Sex: Female

DRUGS (5)
  1. DIURETICS [Concomitant]
  2. ATACAND [Suspect]
     Route: 048
  3. SYMBICORT [Suspect]
     Dosage: TWICE DAILY
     Route: 055
  4. BROVANA [Suspect]
     Route: 065
  5. BUDESONIDE [Suspect]
     Route: 055

REACTIONS (2)
  - PETECHIAE [None]
  - OEDEMA PERIPHERAL [None]
